FAERS Safety Report 7403133-0 (Version None)
Quarter: 2011Q1

REPORT INFORMATION
  Report Type: 
  Country: None (occurrence: None)
  Receive Date: 20110330
  Receipt Date: 20110301
  Transmission Date: 20110831
  Serious: No
  Sender: FDA-Public Use
  Company Number: 2011-00032

PATIENT
  Age: 65 Year
  Sex: Female
  Weight: 78.0187 kg

DRUGS (5)
  1. VITAMIN D [Concomitant]
  2. OXYCODON [Concomitant]
  3. FISH OIL [Concomitant]
  4. ZICAM COLD REMEDY GEL SWABS [Suspect]
     Dosage: BID, 14 MONTHS
     Dates: start: 20090101, end: 20100301
  5. D COMPLEX [Concomitant]

REACTIONS (2)
  - ANOSMIA [None]
  - AGEUSIA [None]
